FAERS Safety Report 19217311 (Version 3)
Quarter: 2022Q3

REPORT INFORMATION
  Report Type: Spontaneous
  Country: US (occurrence: US)
  Receive Date: 20210505
  Receipt Date: 20220711
  Transmission Date: 20221027
  Serious: Yes (Other)
  Sender: FDA-Public Use
  Company Number: US-PFIZER INC-2021465714

PATIENT
  Age: 50 Year
  Sex: Female
  Weight: 45.351 kg

DRUGS (5)
  1. IBRANCE [Suspect]
     Active Substance: PALBOCICLIB
     Indication: Breast cancer metastatic
     Dosage: 125 MG
  2. IBRANCE [Suspect]
     Active Substance: PALBOCICLIB
     Dosage: 100 MG, CYCLIC (DAILY FOR 21 DAYS)
     Route: 048
     Dates: start: 202007
  3. IBRANCE [Suspect]
     Active Substance: PALBOCICLIB
     Dosage: 100 MG, DAILY (100MG ORALLY DAILY FOR 21 DAYS, THEN 7 DAYS OFF )
     Dates: start: 20220701
  4. IBRANCE [Suspect]
     Active Substance: PALBOCICLIB
     Dosage: 100 MG, CYCLIC (100MG - 3 WEEKS ON, 2 WEEKS OFF)
     Dates: start: 20200820
  5. ANASTROZOLE [Concomitant]
     Active Substance: ANASTROZOLE
     Indication: Breast cancer metastatic
     Dosage: UNK

REACTIONS (8)
  - Nephrolithiasis [Unknown]
  - Blood oestrogen increased [Unknown]
  - Stomatitis [Unknown]
  - Fatigue [Unknown]
  - Illness [Unknown]
  - Respiratory tract infection [Recovered/Resolved]
  - Stomatitis [Not Recovered/Not Resolved]
  - Arthritis [Not Recovered/Not Resolved]

NARRATIVE: CASE EVENT DATE: 20220501
